FAERS Safety Report 18168768 (Version 1)
Quarter: 2020Q3

REPORT INFORMATION
  Report Type: Spontaneous
  Country: US (occurrence: US)
  Receive Date: 20200818
  Receipt Date: 20200818
  Transmission Date: 20201103
  Serious: Yes (Hospitalization)
  Sender: FDA-Public Use
  Company Number: None

PATIENT
  Age: 68 Year
  Sex: Male

DRUGS (13)
  1. RETACRIT [Suspect]
     Active Substance: EPOETIN ALFA-EPBX
     Indication: END STAGE RENAL DISEASE
     Route: 058
     Dates: start: 20200122
  2. MYCOPHENOLAT [Concomitant]
     Active Substance: MYCOPHENOLATE MOFETIL
  3. IRBESARTAN. [Concomitant]
     Active Substance: IRBESARTAN
  4. VALGANICICLOV [Concomitant]
  5. VIRT PHOS [Concomitant]
  6. FUROSEMIDE. [Concomitant]
     Active Substance: FUROSEMIDE
  7. ALLOPURINOL. [Concomitant]
     Active Substance: ALLOPURINOL
  8. ROSUVASTATIN. [Concomitant]
     Active Substance: ROSUVASTATIN
  9. TORSEMIDE. [Concomitant]
     Active Substance: TORSEMIDE
  10. RETACRIT [Suspect]
     Active Substance: EPOETIN ALFA-EPBX
     Route: 058
     Dates: start: 20200122
  11. TAMSULOSIN [Concomitant]
     Active Substance: TAMSULOSIN
  12. CALCITRIOL CARVEDILOL [Concomitant]
  13. ZOPLIDEM [Concomitant]

REACTIONS (1)
  - Therapy cessation [None]

NARRATIVE: CASE EVENT DATE: 20200818
